FAERS Safety Report 13455746 (Version 1)
Quarter: 2017Q2

REPORT INFORMATION
  Report Type: Spontaneous
  Country: US (occurrence: US)
  Receive Date: 20170419
  Receipt Date: 20170419
  Transmission Date: 20170830
  Serious: No
  Sender: FDA-Public Use
  Company Number: None

PATIENT

DRUGS (2)
  1. ADRENALIN [Suspect]
     Active Substance: EPINEPHRINE
     Dosage: DOSAGE - INJECTABLE?ADM ROUTE - IM OR SC?TYPE - MULTIPLE DOSE VIAL?SIZE 30 ML
  2. ADRENALIN [Suspect]
     Active Substance: EPINEPHRINE
     Dosage: DOSAGE FORM - SOLUTION?SIZE - 30 ML
     Route: 045

REACTIONS (1)
  - Product packaging confusion [None]
